FAERS Safety Report 7457718-6 (Version None)
Quarter: 2011Q2

REPORT INFORMATION
  Report Type: 
  Country: None (occurrence: None)
  Receive Date: 20110504
  Receipt Date: 20110427
  Transmission Date: 20111010
  Serious: Yes (Other)
  Sender: FDA-Public Use
  Company Number: AU-ROCHE-773899

PATIENT
  Age: 50 Year
  Sex: Male

DRUGS (4)
  1. AVASTIN [Suspect]
     Route: 065
  2. CETUXIMAB [Suspect]
     Route: 065
  3. XELODA [Suspect]
     Route: 065
  4. OXALIPLATIN [Suspect]
     Route: 065

REACTIONS (5)
  - DIARRHOEA [None]
  - PROTEINURIA [None]
  - NEUROPATHY PERIPHERAL [None]
  - DEEP VEIN THROMBOSIS [None]
  - HYPERTENSION [None]
